FAERS Safety Report 14124995 (Version 2)
Quarter: 2017Q4

REPORT INFORMATION
  Report Type: Spontaneous
  Country: US (occurrence: US)
  Receive Date: 20171025
  Receipt Date: 20171114
  Transmission Date: 20180321
  Serious: No
  Sender: FDA-Public Use
  Company Number: PHEH2017US034110

PATIENT
  Sex: Female
  Weight: 52 kg

DRUGS (1)
  1. CLOTRIMAZOLE AND BETAMETHASONE [Suspect]
     Active Substance: BETAMETHASONE\CLOTRIMAZOLE
     Indication: VULVOVAGINAL PRURITUS
     Dosage: BID, APPLY TWICE DAILY TO AFFECTED AREA
     Route: 061

REACTIONS (3)
  - Feeling abnormal [Recovered/Resolved]
  - Condition aggravated [Unknown]
  - Vulvovaginal pruritus [Unknown]
